FAERS Safety Report 15218501 (Version 3)
Quarter: 2018Q3

REPORT INFORMATION
  Report Type: Spontaneous
  Country: ES (occurrence: ES)
  Receive Date: 20180730
  Receipt Date: 20180817
  Transmission Date: 20181010
  Serious: Yes (Hospitalization, Other)
  Sender: FDA-Public Use
  Company Number: ES-009507513-1807ESP010350

PATIENT
  Sex: Female
  Weight: 1.53 kg

DRUGS (6)
  1. BETAMETHASONE. [Suspect]
     Active Substance: BETAMETHASONE
     Dosage: 2 DF, QOD; DOSE 12 MG
     Route: 064
  2. BETAMETHASONE. [Suspect]
     Active Substance: BETAMETHASONE
     Dosage: UNK
     Route: 064
  3. CINACALCET HYDROCHLORIDE. [Suspect]
     Active Substance: CINACALCET HYDROCHLORIDE
     Indication: FOETAL EXPOSURE DURING PREGNANCY
     Dosage: 30 MG, UNK
     Route: 064
  4. CINACALCET HYDROCHLORIDE. [Suspect]
     Active Substance: CINACALCET HYDROCHLORIDE
     Indication: EXPOSURE DURING PREGNANCY
     Dosage: UNK
     Route: 064
  5. FUROSEMIDE. [Suspect]
     Active Substance: FUROSEMIDE
     Indication: FOETAL EXPOSURE DURING PREGNANCY
     Dosage: 20 MG, Q8H
     Route: 064
  6. SALCATONIN [Suspect]
     Active Substance: CALCITONIN SALMON
     Indication: FOETAL EXPOSURE DURING PREGNANCY
     Dosage: 100 IU, Q6H
     Route: 064

REACTIONS (9)
  - Bilirubin conjugated increased [Unknown]
  - Low birth weight baby [Unknown]
  - Neonatal cholestasis [Recovered/Resolved]
  - Foetal growth restriction [Unknown]
  - Underweight [Unknown]
  - Foetal exposure during pregnancy [Unknown]
  - Neonatal hypocalcaemia [Recovered/Resolved]
  - Jaundice neonatal [Recovered/Resolved]
  - Foetal heart rate deceleration abnormality [Unknown]
